FAERS Safety Report 8698567 (Version 3)
Quarter: 2012Q4

REPORT INFORMATION
  Report Type: 
  Country: US (occurrence: US)
  Receive Date: 20120802
  Receipt Date: 20120928
  Transmission Date: 20130627
  Serious: Yes (Other)
  Sender: FDA-Public Use
  Company Number: US-PFIZER INC-2012186211

PATIENT
  Age: 37 Year
  Sex: Female
  Weight: 81.63 kg

DRUGS (5)
  1. EFFEXOR XR [Suspect]
     Indication: ANXIETY
     Dosage: 50 mg, 1x/day
     Route: 048
     Dates: start: 2001, end: 2002
  2. EFFEXOR XR [Suspect]
     Indication: DEPRESSION
     Dosage: 50 mg, 1x/day
     Route: 048
     Dates: start: 2006, end: 201101
  3. EFFEXOR [Suspect]
     Indication: DEPRESSION
     Dosage: 25 mg, 1x/day
     Route: 048
     Dates: start: 20100309
  4. EFFEXOR [Suspect]
     Indication: ANXIETY
  5. ALPRAZOLAM [Concomitant]
     Indication: ANXIETY
     Dosage: 0.25 to 0.5mg, 3x/day as needed
     Route: 048
     Dates: start: 2007

REACTIONS (2)
  - Depression [Unknown]
  - Drug effect incomplete [Unknown]
